FAERS Safety Report 6380704-4 (Version None)
Quarter: 2009Q3

REPORT INFORMATION
  Report Type: 
  Country: None (occurrence: None)
  Receive Date: 20090924
  Receipt Date: 20090914
  Transmission Date: 20100115
  Serious: Yes (Other)
  Sender: FDA-Public Use
  Company Number: 2009SP025234

PATIENT
  Age: 31 Year
  Sex: Female
  Weight: 58.9676 kg

DRUGS (3)
  1. NUVARING [Suspect]
     Indication: DRUG USE FOR UNKNOWN INDICATION
     Dates: start: 20040101
  2. ATIVAN [Suspect]
     Indication: DRUG USE FOR UNKNOWN INDICATION
     Dosage: ; PRN;
     Dates: start: 19990101
  3. GOLD SEAL ANTISEPTIC POWDER [Suspect]
     Indication: FUNGAL INFECTION
     Dates: start: 20090101

REACTIONS (6)
  - ALOPECIA [None]
  - ANXIETY [None]
  - FUNGAL INFECTION [None]
  - HYPERTHYROIDISM [None]
  - PATHOGEN RESISTANCE [None]
  - TREMOR [None]
